FAERS Safety Report 4933496-7 (Version None)
Quarter: 2006Q1

REPORT INFORMATION
  Report Type: 
  Country: None (occurrence: None)
  Receive Date: 20060306
  Receipt Date: 20060222
  Transmission Date: 20060701
  Serious: Yes (Hospitalization)
  Sender: FDA-Public Use
  Company Number: DE-SANOFI-SYNTHELABO-A01200601447

PATIENT
  Age: 75 Year
  Sex: Female

DRUGS (14)
  1. PLAVIX [Suspect]
     Indication: DRUG USE FOR UNKNOWN INDICATION
     Route: 048
  2. PANTOZOL [Interacting]
     Indication: DRUG USE FOR UNKNOWN INDICATION
     Route: 048
     Dates: start: 20050310
  3. VENLAFAXINE HCL [Interacting]
     Indication: DEPRESSION
     Route: 048
     Dates: start: 20050510, end: 20050510
  4. VENLAFAXINE HCL [Interacting]
     Route: 048
     Dates: start: 20050511, end: 20050531
  5. TRIAMTERENE AND HYDROCHLOROTHIAZIDE [Interacting]
     Indication: DRUG USE FOR UNKNOWN INDICATION
     Route: 048
     Dates: start: 20050310
  6. SORTIS [Interacting]
     Indication: DRUG USE FOR UNKNOWN INDICATION
     Route: 048
  7. XANEF [Interacting]
     Indication: CARDIAC FAILURE
     Route: 048
  8. XANEF [Interacting]
     Indication: HYPERTENSION
     Route: 048
  9. TAVOR [Concomitant]
     Indication: DRUG USE FOR UNKNOWN INDICATION
     Route: 065
     Dates: start: 20050421, end: 20050514
  10. ZOLPIDEM [Concomitant]
     Indication: DRUG USE FOR UNKNOWN INDICATION
     Route: 048
     Dates: start: 20040801
  11. SOLIAN [Concomitant]
     Indication: DRUG USE FOR UNKNOWN INDICATION
     Route: 048
     Dates: start: 20050315
  12. L-THYROXIN [Concomitant]
     Indication: DRUG USE FOR UNKNOWN INDICATION
     Route: 048
  13. MIRTAZAPINE [Concomitant]
     Indication: DEPRESSION
     Route: 048
     Dates: start: 20050309, end: 20050509
  14. CIPRAMIL [Concomitant]
     Indication: DRUG USE FOR UNKNOWN INDICATION
     Route: 065
     Dates: start: 20050504, end: 20050509

REACTIONS (2)
  - DRUG INTERACTION [None]
  - HYPONATRAEMIA [None]
